FAERS Safety Report 10096191 (Version 1)
Quarter: 2014Q2

REPORT INFORMATION
  Report Type: Spontaneous
  Country: US (occurrence: US)
  Receive Date: 20140422
  Receipt Date: 20140422
  Transmission Date: 20141212
  Serious: Yes (Hospitalization)
  Sender: FDA-Public Use
  Company Number: US-ASTRAZENECA-2014SE26203

PATIENT
  Sex: Female

DRUGS (2)
  1. CRESTOR [Suspect]
     Indication: BLOOD CHOLESTEROL INCREASED
     Route: 048
     Dates: end: 201404
  2. BYDUREON [Suspect]
     Indication: DIABETES MELLITUS
     Route: 065

REACTIONS (5)
  - Lymphocyte stimulation test [Unknown]
  - Rhabdomyolysis [Unknown]
  - Coronary artery disease [Unknown]
  - Hypertension [Unknown]
  - Diabetes mellitus [Not Recovered/Not Resolved]
